FAERS Safety Report 6032001-4 (Version None)
Quarter: 2009Q1

REPORT INFORMATION
  Report Type: 
  Country: None (occurrence: None)
  Receive Date: 20090108
  Receipt Date: 20051214
  Transmission Date: 20090719
  Serious: Yes (Hospitalization)
  Sender: FDA-Public Use
  Company Number: US-PFIZER INC-2008159869

PATIENT
  Sex: Male
  Weight: 95.69 kg

DRUGS (6)
  1. CELECOXIB [Suspect]
     Indication: ADENOMATOUS POLYPOSIS COLI
     Dosage: 400 MG, 2X/DAY
     Route: 048
     Dates: start: 20010531, end: 20040606
  2. CELECOXIB [Suspect]
     Indication: COLON CANCER
     Dosage: UNK
     Dates: start: 20021120
  3. METFORMIN HYDROCHLORIDE [Concomitant]
     Dosage: UNK
     Dates: start: 20020430
  4. TRAMADOL HYDROCHLORIDE [Concomitant]
     Dosage: UNK
     Dates: start: 20021007
  5. ACETYLSALICYLIC ACID [Concomitant]
     Dosage: UNK
     Dates: start: 20000101
  6. ATENOLOL [Concomitant]
     Dosage: UNK
     Dates: start: 20020530

REACTIONS (1)
  - ATRIAL FIBRILLATION [None]
